FAERS Safety Report 8798411 (Version 2)
Quarter: 2014Q2

REPORT INFORMATION
  Report Type: Report from Study
  Country: US (occurrence: US)
  Receive Date: 20120920
  Receipt Date: 20140105
  Transmission Date: 20141212
  Serious: Yes (Death)
  Sender: FDA-Public Use
  Company Number: US-ROCHE-1124839

PATIENT
  Sex: Male

DRUGS (6)
  1. AVASTIN [Suspect]
     Indication: LUNG NEOPLASM MALIGNANT
     Route: 042
     Dates: start: 20080630
  2. AVASTIN [Suspect]
     Indication: METASTASES TO NERVOUS SYSTEM
     Route: 042
     Dates: end: 200812
  3. CARBOPLATIN [Concomitant]
  4. PACLITAXEL [Concomitant]
     Route: 065
  5. DEXAMETHASONE [Concomitant]
     Route: 042
  6. DIPHENHYDRAMINE HCL [Concomitant]
     Route: 042

REACTIONS (2)
  - Death [Fatal]
  - Disease progression [Unknown]
